FAERS Safety Report 18375305 (Version 1)
Quarter: 2020Q4

REPORT INFORMATION
  Report Type: Spontaneous
  Country: CA (occurrence: CA)
  Receive Date: 20201012
  Receipt Date: 20201012
  Transmission Date: 20210114
  Serious: Yes (Other)
  Sender: FDA-Public Use
  Company Number: CA-SAMSUNG BIOEPIS-SB-2020-30943

PATIENT
  Sex: Male
  Weight: 93.07 kg

DRUGS (3)
  1. PREDNISONE. [Concomitant]
     Active Substance: PREDNISONE
     Indication: PAIN PROPHYLAXIS
     Dosage: TWO WEEKS PRIOR TO NEXT INFUSION
     Route: 065
  2. RENFLEXIS [Suspect]
     Active Substance: INFLIXIMAB-ABDA
     Indication: BEHCET^S SYNDROME
     Dosage: UNKNOWN
     Route: 065
  3. INFLECTRA [Suspect]
     Active Substance: INFLIXIMAB-DYYB
     Indication: BEHCET^S SYNDROME
     Dosage: UNKNOWN
     Route: 065

REACTIONS (4)
  - Product substitution issue [Unknown]
  - Behcet^s syndrome [Unknown]
  - Off label use [Unknown]
  - Therapeutic response shortened [Unknown]
